FAERS Safety Report 17061859 (Version 2)
Quarter: 2019Q4

REPORT INFORMATION
  Report Type: Spontaneous
  Country: JP (occurrence: JP)
  Receive Date: 20191121
  Receipt Date: 20191217
  Transmission Date: 20200122
  Serious: Yes (Other)
  Sender: FDA-Public Use
  Company Number: NVSJ2019JP003816

PATIENT
  Sex: Male

DRUGS (2)
  1. REVOLADE TAB [Suspect]
     Active Substance: ELTROMBOPAG
     Dosage: 37.5 MG,UNKNOWN
     Route: 048
     Dates: end: 20190911
  2. REVOLADE TAB [Suspect]
     Active Substance: ELTROMBOPAG
     Indication: APLASTIC ANAEMIA
     Dosage: UNK
     Route: 048
     Dates: start: 20190424

REACTIONS (3)
  - Myelodysplastic syndrome [Not Recovered/Not Resolved]
  - Blast cells present [Unknown]
  - Anaemia [Unknown]

NARRATIVE: CASE EVENT DATE: 20190807
